FAERS Safety Report 13768220 (Version 6)
Quarter: 2017Q4

REPORT INFORMATION
  Report Type: Spontaneous
  Country: KR (occurrence: KR)
  Receive Date: 20170719
  Receipt Date: 20171205
  Transmission Date: 20180320
  Serious: Yes (Death, Other)
  Sender: FDA-Public Use
  Company Number: KR-009507513-1707KOR006094

PATIENT
  Age: 71 Year
  Sex: Male

DRUGS (14)
  1. NOXAFIL [Suspect]
     Active Substance: POSACONAZOLE
     Dosage: 300 MG, ONCE A DAY
     Route: 048
     Dates: start: 20170618, end: 20170703
  2. TAMIPOOL [Concomitant]
     Active Substance: VITAMINS
     Indication: VITAMIN SUPPLEMENTATION
     Dosage: 1 VIAL, QD (ONCE DAILY)
     Route: 042
     Dates: start: 20170617, end: 20170620
  3. DEXAMETHASONE. [Concomitant]
     Active Substance: DEXAMETHASONE
     Indication: ALLERGY PROPHYLAXIS
     Dosage: 20 MG, QD (ONCE DAILY)
     Route: 042
     Dates: start: 20170614, end: 20170703
  4. BENZYDAMINE HYDROCHLORIDE [Concomitant]
     Active Substance: BENZYDAMINE HYDROCHLORIDE
     Indication: PROPHYLAXIS
     Dosage: 15 ML, PRN(GARGLING)
     Dates: start: 20170616, end: 20170703
  5. IPRATROPIUM BROMIDE. [Concomitant]
     Active Substance: IPRATROPIUM BROMIDE
     Indication: DYSPNOEA
     Dosage: 500 MICROGRAM, PRN
     Route: 055
     Dates: start: 20170614, end: 20170703
  6. SEPTRIN [Concomitant]
     Active Substance: SULFAMETHOXAZOLE\TRIMETHOPRIM
     Indication: ATYPICAL PNEUMONIA
     Dosage: 1 TABLET, BID (TWICE A DAY)
     Route: 048
     Dates: start: 20170616, end: 20170703
  7. TNA PERI [Concomitant]
     Indication: ASTHENIA
     Dosage: 1 BAG, QD (ONCE DAILY)
     Route: 042
     Dates: start: 20170617, end: 20170620
  8. FUROSEMIDE. [Concomitant]
     Active Substance: FUROSEMIDE
     Indication: ACUTE KIDNEY INJURY
     Dosage: 20 MG, QD (ONCE DAILY)
     Route: 042
     Dates: start: 20170614, end: 20170703
  9. PANTOLOC [Concomitant]
     Active Substance: PANTOPRAZOLE SODIUM
     Indication: PROPHYLAXIS AGAINST GASTROINTESTINAL ULCER
     Dosage: 40 MG, QD (ONCE DAILY)
     Route: 048
     Dates: start: 20170616, end: 20170704
  10. NOXAFIL [Suspect]
     Active Substance: POSACONAZOLE
     Indication: ANTIFUNGAL PROPHYLAXIS
     Dosage: 300 MG, TWICE A DAY
     Route: 048
     Dates: start: 20170617, end: 20170617
  11. CIPROFLOXACIN. [Concomitant]
     Active Substance: CIPROFLOXACIN
     Indication: ATYPICAL PNEUMONIA
     Dosage: 400 MG, BID (TWO TIMES A DAY)
     Route: 042
     Dates: start: 20170616, end: 20170701
  12. URSODIOL. [Concomitant]
     Active Substance: URSODIOL
     Indication: BLOOD BILIRUBIN INCREASED
     Dosage: 100 MG, TID (THREE TIMES A DAY)
     Route: 048
     Dates: start: 20170615, end: 20170703
  13. TABAXIN [Concomitant]
     Active Substance: PIPERACILLIN SODIUM\TAZOBACTAM SODIUM
     Indication: ATYPICAL PNEUMONIA
     Dosage: 4.5 G, TID (THREE TIMES A DAY)
     Route: 042
     Dates: start: 20170616, end: 20170701
  14. ALLOPURINOL. [Concomitant]
     Active Substance: ALLOPURINOL
     Indication: PROPHYLAXIS
     Dosage: 100 MG, TID (THREE TIMES A DAY)
     Route: 048
     Dates: start: 20170616, end: 20170703

REACTIONS (7)
  - Atrial fibrillation [Not Recovered/Not Resolved]
  - Neutropenia [Not Recovered/Not Resolved]
  - Haemoptysis [Not Recovered/Not Resolved]
  - Pneumonia [Fatal]
  - Diarrhoea [Not Recovered/Not Resolved]
  - Cough [Not Recovered/Not Resolved]
  - Nausea [Not Recovered/Not Resolved]

NARRATIVE: CASE EVENT DATE: 20170617
